FAERS Safety Report 4282589-9 (Version None)
Quarter: 2004Q1

REPORT INFORMATION
  Report Type: 
  Country: None (occurrence: None)
  Receive Date: 20040130
  Receipt Date: 20020417
  Transmission Date: 20041129
  Serious: No
  Sender: FDA-Public Use
  Company Number: US-BRISTOL-MYERS SQUIBB COMPANY-11828092

PATIENT
  Age: 48 Year
  Sex: Male

DRUGS (12)
  1. SERZONE [Suspect]
     Indication: DEPRESSION
     Dosage: 100MG (10/97),INCREASED TO 150MG (SEEN IN MED RECORDS IN 2/99) 1 +1/2 TABS BID
     Route: 048
  2. GLYBURIDE [Concomitant]
  3. METFORMIN HCL [Concomitant]
  4. KLONOPIN [Concomitant]
  5. ACARBOSE [Concomitant]
  6. LORCET-HD [Concomitant]
     Indication: PAIN
     Dosage: 10/650MG 1-2 TABLS EVERY 4-6 HOURS AS NEEDED PAIN, MAX 6/24HR
  7. SONATA [Concomitant]
     Dosage: MAY REPEAT TIMES 1 IF NEEDED
  8. GEMFIBROZIL [Concomitant]
  9. PRILOSEC [Concomitant]
  10. DURAGESIC [Concomitant]
     Route: 062
  11. TIMOLOL MALEATE [Concomitant]
  12. LATANOPROST [Concomitant]

REACTIONS (3)
  - ALANINE AMINOTRANSFERASE INCREASED [None]
  - ASPARTATE AMINOTRANSFERASE INCREASED [None]
  - HEPATITIS C [None]
